FAERS Safety Report 9386003 (Version 1)
Quarter: 2013Q3

REPORT INFORMATION
  Report Type: Report from Study
  Country: US (occurrence: US)
  Receive Date: 20130705
  Receipt Date: 20130705
  Transmission Date: 20140515
  Serious: Yes (Other)
  Sender: FDA-Public Use
  Company Number: US-ABBOTT-13P-163-1112085-00

PATIENT
  Sex: Male
  Weight: 81.27 kg

DRUGS (6)
  1. HUMIRA [Suspect]
     Indication: RHEUMATOID ARTHRITIS
     Dates: end: 201305
  2. HUMIRA [Suspect]
     Dates: start: 201305
  3. CELLCEPT [Concomitant]
     Indication: INTERSTITIAL LUNG DISEASE
  4. TRAMADOL [Concomitant]
     Indication: RHEUMATOID ARTHRITIS
  5. PREDNISONE [Concomitant]
     Indication: RHEUMATOID ARTHRITIS
  6. ATENOLOL [Concomitant]
     Indication: ATRIAL FIBRILLATION

REACTIONS (7)
  - Pulmonary mass [Not Recovered/Not Resolved]
  - Interstitial lung disease [Not Recovered/Not Resolved]
  - Dyspnoea [Not Recovered/Not Resolved]
  - Pneumonia [Recovered/Resolved]
  - Night sweats [Recovered/Resolved]
  - Chills [Recovered/Resolved]
  - Drug effect decreased [Not Recovered/Not Resolved]
